FAERS Safety Report 15165757 (Version 2)
Quarter: 2018Q3

REPORT INFORMATION
  Report Type: Spontaneous
  Country: SG (occurrence: US)
  Receive Date: 20180719
  Receipt Date: 20180803
  Transmission Date: 20181010
  Serious: Yes (Other)
  Sender: FDA-Public Use
  Company Number: SG-IMPAX LABORATORIES, INC-2018-IPXL-02378

PATIENT
  Age: 27 Year
  Sex: Male

DRUGS (12)
  1. CABERGOLINE. [Suspect]
     Active Substance: CABERGOLINE
     Dosage: 0.5 MG, 1 /WEEK, FOR 1 MONTH
     Route: 065
  2. CABERGOLINE. [Suspect]
     Active Substance: CABERGOLINE
     Dosage: 0.5 MG, 2 /WEEK
     Route: 065
  3. CABERGOLINE. [Suspect]
     Active Substance: CABERGOLINE
     Dosage: 2.5 MG, 2 /WEEK
     Route: 065
  4. THYROXINE [Concomitant]
     Active Substance: LEVOTHYROXINE
     Dosage: 75 ?G, UNK
     Route: 065
  5. CABERGOLINE. [Suspect]
     Active Substance: CABERGOLINE
     Dosage: 1.5 MG, 2 /WEEK
     Route: 065
  6. CABERGOLINE. [Suspect]
     Active Substance: CABERGOLINE
     Dosage: 1.0 MG, 2 /WEEK
     Route: 065
  7. THYROXINE [Concomitant]
     Active Substance: LEVOTHYROXINE
     Indication: SECONDARY HYPOTHYROIDISM
     Dosage: 25 ?G, MORNING
     Route: 065
  8. THYROXINE [Concomitant]
     Active Substance: LEVOTHYROXINE
     Dosage: 100 ?G, ONCE EVERY MORNING (PREMEAL)
     Route: 065
  9. CABERGOLINE. [Suspect]
     Active Substance: CABERGOLINE
     Dosage: 1.0 MG, 2 /WEEK, FOR 2 WEEKS
     Route: 065
  10. CABERGOLINE. [Suspect]
     Active Substance: CABERGOLINE
     Indication: PROLACTIN-PRODUCING PITUITARY TUMOUR
     Dosage: 0.25 MG, BEDTIME
     Route: 065
  11. CABERGOLINE. [Suspect]
     Active Substance: CABERGOLINE
     Dosage: 1.5 MG, EVERY WEEK (TO TAKE 1 MG ON TUESDAY AND 0.5 MG ON FRIDAY)
     Route: 065
  12. THYROXINE [Concomitant]
     Active Substance: LEVOTHYROXINE
     Indication: SECONDARY HYPOGONADISM
     Dosage: 50 ?G, DAILY
     Route: 065

REACTIONS (3)
  - Drug ineffective [Unknown]
  - Tricuspid valve incompetence [Recovered/Resolved]
  - Fibrosis [Recovered/Resolved]
